FAERS Safety Report 4462025-X (Version None)
Quarter: 2004Q3

REPORT INFORMATION
  Report Type: 
  Country: None (occurrence: None)
  Receive Date: 20040929
  Receipt Date: 20040726
  Transmission Date: 20050211
  Serious: Yes (Other)
  Sender: FDA-Public Use
  Company Number: PHBS2004JP10043

PATIENT
  Age: 70 Year
  Sex: Female

DRUGS (6)
  1. LAMISIL [Suspect]
     Indication: NAIL TINEA
     Dosage: 125 MG/D
     Route: 048
     Dates: start: 20040621, end: 20040715
  2. MENTAX ^KAKEN^ [Concomitant]
     Indication: TINEA PEDIS
     Route: 061
     Dates: start: 20040621
  3. ZYRTEC [Concomitant]
     Dosage: 10 MG/DAY
     Route: 048
     Dates: start: 20040621
  4. SUNCHLON [Concomitant]
     Dosage: 2 MG/DAY
     Route: 048
     Dates: start: 20040621
  5. METHADERM [Concomitant]
     Dates: start: 20040621
  6. PREDONINE [Concomitant]
     Dosage: 50 MG/DAY
     Route: 048
     Dates: start: 20040621

REACTIONS (11)
  - BLISTER [None]
  - BLOOD UREA INCREASED [None]
  - CEREBROVASCULAR DISORDER [None]
  - DERMATITIS [None]
  - ERYTHEMA [None]
  - HERPES ZOSTER [None]
  - RASH [None]
  - RASH ERYTHEMATOUS [None]
  - SKIN ULCER [None]
  - TOXIC SKIN ERUPTION [None]
  - WHITE BLOOD CELL COUNT INCREASED [None]
